FAERS Safety Report 10004085 (Version 2)
Quarter: 2014Q2

REPORT INFORMATION
  Report Type: Report from Study
  Country: DE (occurrence: DE)
  Receive Date: 20140312
  Receipt Date: 20140618
  Transmission Date: 20141212
  Serious: Yes (Hospitalization)
  Sender: FDA-Public Use
  Company Number: PHHO2014DE003510

PATIENT
  Sex: 0

DRUGS (8)
  1. BLINDED ALISKIREN [Suspect]
     Indication: CARDIAC FAILURE
     Dosage: CODE NOT BROKEN
     Route: 048
     Dates: start: 20111123
  2. BLINDED ENALAPRIL [Suspect]
     Indication: CARDIAC FAILURE
     Dosage: CODE NOT BROKEN
     Route: 048
     Dates: start: 20111123
  3. BLINDED NO TREATMENT RECEIVED [Suspect]
     Indication: CARDIAC FAILURE
     Dosage: CODE NOT BROKEN
     Route: 048
     Dates: start: 20111123
  4. ASPIRIN [Concomitant]
  5. SIMVASTATIN [Concomitant]
     Indication: DRUG THERAPY
     Dosage: 20 MG, 1D
     Route: 048
     Dates: start: 20051107
  6. HCT [Concomitant]
     Indication: POLYURIA
     Dosage: 25 MG, QD
     Dates: start: 20140121, end: 20140121
  7. BERLTHYROX [Concomitant]
     Indication: THYROID HORMONE REPLACEMENT THERAPY
     Dosage: 100 UG, 1 D
     Route: 048
     Dates: start: 20071217
  8. METO TABLINEN [Concomitant]
     Indication: DRUG THERAPY
     Dosage: 25 MG, 1 D
     Route: 048
     Dates: start: 20080507

REACTIONS (1)
  - Lower gastrointestinal haemorrhage [Recovered/Resolved]
